FAERS Safety Report 12110992 (Version 3)
Quarter: 2016Q1

REPORT INFORMATION
  Report Type: Spontaneous
  Country: JP (occurrence: JP)
  Receive Date: 20160224
  Receipt Date: 20160311
  Transmission Date: 20160526
  Serious: Yes (Hospitalization)
  Sender: FDA-Public Use
  Company Number: JP-SHIONOGI, INC-2016000157

PATIENT
  Age: 67 Year
  Sex: Male
  Weight: 52.5 kg

DRUGS (7)
  1. CUBICIN [Suspect]
     Active Substance: DAPTOMYCIN
     Dosage: 350 MG, QOD
     Route: 041
     Dates: start: 20141014, end: 20141024
  2. VANCOMYCIN HYDROCHLORIDE. [Concomitant]
     Active Substance: VANCOMYCIN HYDROCHLORIDE
     Dosage: UNK
     Route: 065
     Dates: start: 20140926, end: 20140929
  3. ZOSYN [Suspect]
     Active Substance: PIPERACILLIN SODIUM\TAZOBACTAM SODIUM
     Indication: AORTIC ANEURYSM RUPTURE
     Dosage: 2.25 G, QD
     Route: 042
     Dates: start: 20141009, end: 20141009
  4. CUBICIN [Suspect]
     Active Substance: DAPTOMYCIN
     Dosage: 350 MG, QD
     Route: 041
     Dates: start: 20141010, end: 20141013
  5. MEROPEN                            /01250501/ [Suspect]
     Active Substance: MEROPENEM
     Indication: AORTIC ANEURYSM RUPTURE
     Dosage: 1 G, QD
     Route: 042
     Dates: start: 20140926, end: 20141008
  6. CUBICIN [Suspect]
     Active Substance: DAPTOMYCIN
     Indication: AORTIC ANEURYSM RUPTURE
     Dosage: UNK
     Route: 041
     Dates: start: 20140930
  7. FINIBAX [Suspect]
     Active Substance: DORIPENEM MONOHYDRATE
     Indication: AORTIC ANEURYSM RUPTURE
     Dosage: 0.5 G, QD
     Route: 042
     Dates: start: 20141010, end: 20141013

REACTIONS (1)
  - Tubulointerstitial nephritis [Recovered/Resolved]

NARRATIVE: CASE EVENT DATE: 20141010
